FAERS Safety Report 18201044 (Version 1)
Quarter: 2020Q3

REPORT INFORMATION
  Report Type: Spontaneous
  Country: US (occurrence: US)
  Receive Date: 20200826
  Receipt Date: 20200826
  Transmission Date: 20201103
  Serious: No
  Sender: FDA-Public Use
  Company Number: None

PATIENT

DRUGS (2)
  1. SUCCINUYLCHOLINE CHLORIDE; SUCCINYLCHOLINE CHLORIDE [Suspect]
     Active Substance: SUCCINYLCHOLINE CHLORIDE
     Dosage: ?          OTHER DOSE:100MG/5ML;OTHER ROUTE:INJECTION?
  2. ROCURONIUM BROMIDE ROCURONIUM BROMIDE [Suspect]
     Active Substance: ROCURONIUM BROMIDE
     Dosage: ?          OTHER DOSE:50MG/5ML;OTHER ROUTE:INJECTION?

REACTIONS (2)
  - Product packaging confusion [None]
  - Product administration interrupted [None]
